FAERS Safety Report 23781607 (Version 1)
Quarter: 2024Q2

REPORT INFORMATION
  Report Type: Spontaneous
  Country: US (occurrence: US)
  Receive Date: 20240425
  Receipt Date: 20240425
  Transmission Date: 20240716
  Serious: No
  Sender: FDA-Public Use
  Company Number: US-ABBVIE-5731960

PATIENT
  Sex: Female

DRUGS (6)
  1. BOTOX [Suspect]
     Active Substance: ONABOTULINUMTOXINA
     Indication: Muscle hypertrophy
     Dosage: TIME INTERVAL: AS NECESSARY: DOSE 22 U, TOTAL DOSE 100 U
     Route: 065
     Dates: start: 202404, end: 202404
  2. BOTOX [Suspect]
     Active Substance: ONABOTULINUMTOXINA
     Indication: Muscle hypertrophy
     Dosage: TIME INTERVAL: AS NECESSARY: DOSE 4 U, TOTAL DOSE 100 U
     Route: 065
     Dates: start: 202404, end: 202404
  3. BOTOX [Suspect]
     Active Substance: ONABOTULINUMTOXINA
     Indication: Muscle hypertrophy
     Dosage: TIME INTERVAL: AS NECESSARY: DOSE 18 U, TOTAL DOSE 100 U
     Route: 065
     Dates: start: 202404, end: 202404
  4. BOTOX [Suspect]
     Active Substance: ONABOTULINUMTOXINA
     Indication: Muscle hypertrophy
     Dosage: TIME INTERVAL: AS NECESSARY: 16 U EACH SIDE, TOTAL DOSE 100 U
     Route: 065
     Dates: start: 202404, end: 202404
  5. BOTOX [Suspect]
     Active Substance: ONABOTULINUMTOXINA
     Indication: Muscle hypertrophy
     Dosage: TIME INTERVAL: AS NECESSARY: 6 UNITS EACH SIDE, TOTAL DOSE 100 U
     Route: 065
     Dates: start: 202404, end: 202404
  6. BOTOX [Suspect]
     Active Substance: ONABOTULINUMTOXINA
     Indication: Muscle hypertrophy
     Dosage: TIME INTERVAL: AS NECESSARY: DOSE 6 U, TOTAL DOSE 100 U
     Route: 065
     Dates: start: 202404, end: 202404

REACTIONS (1)
  - Off label use [Unknown]

NARRATIVE: CASE EVENT DATE: 20240401
